FAERS Safety Report 8210184-5 (Version None)
Quarter: 2012Q1

REPORT INFORMATION
  Report Type: 
  Country: None (occurrence: None)
  Receive Date: 20120314
  Receipt Date: 20110607
  Transmission Date: 20120608
  Serious: No
  Sender: FDA-Public Use
  Company Number: US-ASTRAZENECA-2011SE32470

PATIENT
  Age: 77 Year
  Sex: Female
  Weight: 83.9 kg

DRUGS (4)
  1. METOPROLOL SUCCINATE [Suspect]
     Indication: TACHYCARDIA
     Route: 048
     Dates: start: 20110301
  2. VITAMIN TAB [Concomitant]
  3. PRAVACHOL [Concomitant]
  4. ESTRATE CREAM [Concomitant]

REACTIONS (4)
  - DYSPHAGIA [None]
  - URTICARIA [None]
  - INAPPROPRIATE SCHEDULE OF DRUG ADMINISTRATION [None]
  - OFF LABEL USE [None]
